FAERS Safety Report 8553682-7 (Version None)
Quarter: 2012Q2

REPORT INFORMATION
  Report Type: 
  Country: None (occurrence: None)
  Receive Date: 20120417
  Receipt Date: 20110727
  Transmission Date: 20120825
  Serious: Yes (Other)
  Sender: FDA-Public Use
  Company Number: 11-452

PATIENT
  Age: 42 Year
  Sex: Male
  Weight: 93 kg

DRUGS (2)
  1. ALEVE [Suspect]
     Indication: HANGOVER
     Dosage: 2DF / ORAL
     Route: 048
  2. ASPIRIN [Suspect]
     Indication: HANGOVER
     Dosage: 2DF

REACTIONS (2)
  - GASTRIC HAEMORRHAGE [None]
  - MYALGIA [None]
